FAERS Safety Report 20657960 (Version 3)
Quarter: 2023Q1

REPORT INFORMATION
  Report Type: Report from Study
  Country: US (occurrence: None)
  Receive Date: 20220331
  Receipt Date: 20230308
  Transmission Date: 20230418
  Serious: Yes (Hospitalization, Other)
  Sender: FDA-Public Use
  Company Number: US-ROCHE-2941079

PATIENT
  Age: 59 Year
  Sex: Male
  Weight: 93.3 kg

DRUGS (2)
  1. OBINUTUZUMAB [Suspect]
     Active Substance: OBINUTUZUMAB
     Indication: Follicular lymphoma
     Dosage: LAST ADMINISTERED DATE: 31/JAN/2022
     Route: 042
     Dates: start: 20220131
  2. BENDAMUSTINE HYDROCHLORIDE [Suspect]
     Active Substance: BENDAMUSTINE HYDROCHLORIDE
     Indication: Follicular lymphoma
     Dosage: LAST ADMINISTERED DATE: 14/AUG/2021?90MG/M2 IV ON DAYS 1 AND 2
     Route: 042
     Dates: start: 20210426

REACTIONS (3)
  - White blood cell count decreased [Recovered/Resolved]
  - Lymphocyte count decreased [Not Recovered/Not Resolved]
  - Pneumonia [Not Recovered/Not Resolved]

NARRATIVE: CASE EVENT DATE: 20210910
